FAERS Safety Report 14235745 (Version 1)
Quarter: 2017Q4

REPORT INFORMATION
  Report Type: Spontaneous
  Country: US (occurrence: US)
  Receive Date: 20171129
  Receipt Date: 20171129
  Transmission Date: 20180321
  Serious: No
  Sender: FDA-Public Use
  Company Number: US-GLAXOSMITHKLINE-US2017181463

PATIENT
  Age: 57 Year
  Sex: Female

DRUGS (8)
  1. THYROXIN [Concomitant]
     Active Substance: LEVOTHYROXINE
  2. NUCALA [Suspect]
     Active Substance: MEPOLIZUMAB
     Indication: ASTHMA
     Dosage: UNK UNK, U
     Route: 042
     Dates: start: 201711
  3. BENADRYL AH [Concomitant]
  4. MAGNESIUM [Concomitant]
     Active Substance: MAGNESIUM
  5. LASIX [Concomitant]
     Active Substance: FUROSEMIDE
  6. LORAZEPAM. [Concomitant]
     Active Substance: LORAZEPAM
  7. CYTOMEL [Concomitant]
     Active Substance: LIOTHYRONINE SODIUM
  8. ZANTAC [Concomitant]
     Active Substance: RANITIDINE HYDROCHLORIDE

REACTIONS (4)
  - Palpitations [Recovered/Resolved]
  - Vocal cord dysfunction [Recovering/Resolving]
  - Thirst [Recovering/Resolving]
  - Paraesthesia [Unknown]

NARRATIVE: CASE EVENT DATE: 201711
